FAERS Safety Report 10924894 (Version 1)
Quarter: 2015Q1

REPORT INFORMATION
  Report Type: Spontaneous
  Country: CN (occurrence: CN)
  Receive Date: 20150318
  Receipt Date: 20150318
  Transmission Date: 20150721
  Serious: Yes (Other)
  Sender: FDA-Public Use
  Company Number: CN-MYLANLABS-2015M1008451

PATIENT

DRUGS (5)
  1. LIDOCAINE. [Concomitant]
     Active Substance: LIDOCAINE
     Indication: LOCAL ANAESTHESIA
     Dosage: 2%
     Route: 065
  2. MITOMYCIN. [Suspect]
     Active Substance: MITOMYCIN
     Indication: HEPATOCELLULAR CARCINOMA
     Dosage: 10MG; 7 PROCEDURES, TRANSCATHETER ARTERIAL CHEMOBOLISATION VIA RIGHT INTERNAL MAMMARY ARTERY
     Route: 013
     Dates: start: 20100812
  3. OXALIPLATIN. [Suspect]
     Active Substance: OXALIPLATIN
     Indication: HEPATOCELLULAR CARCINOMA
     Dosage: 150MG; 7 PROCEDURES, TRANSCATHETER ARTERIAL CHEMOBOLISATION VIA RIGHT INTERNAL MAMMARY ARTERY
     Route: 013
     Dates: start: 20100812
  4. IODIZED OIL [Suspect]
     Active Substance: IODIZED OIL
     Indication: HEPATOCELLULAR CARCINOMA
     Dosage: 15ML; 7 PROCEDURES, TRANSCATHETER ARTERIAL CHEMOBOLISATION VIA RIGHT INTERNAL MAMMARY ARTERY
     Route: 013
     Dates: start: 20100812
  5. PIRARUBICIN [Suspect]
     Active Substance: PIRARUBICIN
     Indication: HEPATOCELLULAR CARCINOMA
     Dosage: 50MG; 7 PROCEDURES, TRANSCATHETER ARTERIAL CHEMOBOLISATION VIA RIGHT INTERNAL MAMMARY ARTERY
     Route: 013
     Dates: start: 20100812

REACTIONS (3)
  - Spinal cord injury thoracic [Recovering/Resolving]
  - Skin necrosis [Unknown]
  - Vascular procedure complication [Recovering/Resolving]
